FAERS Safety Report 19305773 (Version 2)
Quarter: 2021Q3

REPORT INFORMATION
  Report Type: Spontaneous
  Country: US (occurrence: US)
  Receive Date: 20210525
  Receipt Date: 20210701
  Transmission Date: 20211014
  Serious: Yes (Hospitalization, Other)
  Sender: FDA-Public Use
  Company Number: US-PFIZER INC-2021535362

PATIENT
  Age: 87 Year
  Sex: Female

DRUGS (3)
  1. TOZINAMERAN. [Suspect]
     Active Substance: TOZINAMERAN
     Indication: COVID-19 IMMUNISATION
     Dosage: DOSE NUMBER UNKNOWN, SINGLE
  2. IBRANCE [Suspect]
     Active Substance: PALBOCICLIB
     Dosage: 100 MG
  3. IBRANCE [Suspect]
     Active Substance: PALBOCICLIB
     Dosage: 75 MG

REACTIONS (10)
  - Accident [Unknown]
  - Pneumonitis [Unknown]
  - Dyspnoea [Unknown]
  - Memory impairment [Unknown]
  - Anxiety [Unknown]
  - Atrial fibrillation [Unknown]
  - Pneumonia [Unknown]
  - Dysphemia [Unknown]
  - Fall [Unknown]
  - Fatigue [Unknown]
